FAERS Safety Report 7906805-4 (Version None)
Quarter: 2011Q4

REPORT INFORMATION
  Report Type: 
  Country: None (occurrence: None)
  Receive Date: 20111110
  Receipt Date: 20111102
  Transmission Date: 20120403
  Serious: Yes (Other)
  Sender: FDA-Public Use
  Company Number: JP-TEVA-278881ISR

PATIENT

DRUGS (4)
  1. PEMETREXED [Suspect]
  2. CISPLATIN [Suspect]
  3. VINORELBINE TARTRATE [Suspect]
     Indication: SMALL CELL LUNG CANCER STAGE UNSPECIFIED
  4. AMIODARONE HCL [Suspect]

REACTIONS (2)
  - LUNG DISORDER [None]
  - INTERSTITIAL LUNG DISEASE [None]
